FAERS Safety Report 10207434 (Version 1)
Quarter: 2014Q2

REPORT INFORMATION
  Report Type: Spontaneous
  Country: US (occurrence: US)
  Receive Date: 20140530
  Receipt Date: 20140530
  Transmission Date: 20141212
  Serious: No
  Sender: FDA-Public Use
  Company Number: US-GLAXOSMITHKLINE-A1043920A

PATIENT
  Age: 69 Year
  Sex: Male

DRUGS (6)
  1. VENTOLIN [Suspect]
     Indication: COUGH
     Dosage: 90MCG AS REQUIRED
     Route: 055
     Dates: start: 20131002, end: 20131002
  2. ZETIA [Concomitant]
  3. LOVAZA [Concomitant]
  4. LOSARTAN [Concomitant]
  5. GABAPENTIN [Concomitant]
  6. VITAMIN D3 [Concomitant]

REACTIONS (7)
  - Chills [Recovered/Resolved]
  - Cough [Recovered/Resolved]
  - Tremor [Recovered/Resolved]
  - Asthenia [Not Recovered/Not Resolved]
  - Dizziness [Recovered/Resolved]
  - Headache [Recovered/Resolved]
  - Decreased appetite [Recovered/Resolved]
